FAERS Safety Report 5083195-9 (Version None)
Quarter: 2006Q3

REPORT INFORMATION
  Report Type: 
  Country: None (occurrence: None)
  Receive Date: 20060724
  Receipt Date: 20031121
  Transmission Date: 20061208
  Serious: Yes (Hospitalization)
  Sender: FDA-Public Use
  Company Number: DRON00206001372

PATIENT
  Age: 58 Year
  Sex: Female

DRUGS (4)
  1. MARINOL [Suspect]
     Indication: MULTIPLE SCLEROSIS
     Dosage: 1 DOSAGE FORM QD ORAL DAILY DOSE: 5 TO 20 MG DAILY
     Route: 048
     Dates: start: 20020829, end: 20030601
  2. MARINOL [Suspect]
     Indication: MUSCLE SPASTICITY
     Dosage: 1 DOSAGE FORM QD ORAL DAILY DOSE: 5 TO 20 MG DAILY
     Route: 048
     Dates: start: 20020829, end: 20030601
  3. BACLOFEN [Concomitant]
  4. PROPANTHELINE [Concomitant]

REACTIONS (1)
  - MULTIPLE SCLEROSIS [None]
